FAERS Safety Report 9132408 (Version 2)
Quarter: 2013Q3

REPORT INFORMATION
  Report Type: Report from Study
  Country: BR (occurrence: BR)
  Receive Date: 20130301
  Receipt Date: 20130806
  Transmission Date: 20140515
  Serious: Yes (Other)
  Sender: FDA-Public Use
  Company Number: BR-ROCHE-1191798

PATIENT
  Age: 24 Year
  Sex: Female
  Weight: 60 kg

DRUGS (5)
  1. MABTHERA [Suspect]
     Indication: RHEUMATOID ARTHRITIS
     Route: 042
     Dates: start: 20120204
  2. REUQUINOL [Concomitant]
  3. METICORTEN [Concomitant]
  4. AZATHIOPRINE [Concomitant]
  5. AMLODIPINE [Concomitant]

REACTIONS (2)
  - Arthropathy [Not Recovered/Not Resolved]
  - Therapeutic response decreased [Unknown]
